FAERS Safety Report 23160062 (Version 1)
Quarter: 2023Q4

REPORT INFORMATION
  Report Type: Spontaneous
  Country: US (occurrence: US)
  Receive Date: 20231108
  Receipt Date: 20231108
  Transmission Date: 20240109
  Serious: Yes (Death, Other)
  Sender: FDA-Public Use
  Company Number: US-Blueprint Medicines Corporation-SP-US-2023-001737

PATIENT
  Age: 67 Year
  Sex: Male

DRUGS (1)
  1. AYVAKIT [Suspect]
     Active Substance: AVAPRITINIB
     Indication: Systemic mastocytosis
     Route: 065

REACTIONS (13)
  - Death [Fatal]
  - Dementia [Unknown]
  - Cerebral haemorrhage [Unknown]
  - Central nervous system infection [Unknown]
  - Hallucination, visual [Unknown]
  - Hallucination, olfactory [Unknown]
  - Dysgeusia [Unknown]
  - Taste disorder [Unknown]
  - Eating disorder [Unknown]
  - Fear of death [Unknown]
  - Paranoia [Unknown]
  - Mental disorder [Unknown]
  - Blood iron abnormal [Unknown]

NARRATIVE: CASE EVENT DATE: 20230628
